FAERS Safety Report 14380162 (Version 1)
Quarter: 2018Q1

REPORT INFORMATION
  Report Type: Spontaneous
  Country: US (occurrence: US)
  Receive Date: 20180112
  Receipt Date: 20180112
  Transmission Date: 20180509
  Serious: Yes (Other)
  Sender: FDA-Public Use
  Company Number: US-TEVA-2018-US-843624

PATIENT
  Sex: Female

DRUGS (1)
  1. ACTIQ [Suspect]
     Active Substance: FENTANYL CITRATE
     Indication: MIGRAINE
     Route: 065

REACTIONS (2)
  - Bedridden [Unknown]
  - Contraindicated product administered [Unknown]
